FAERS Safety Report 8582837-0 (Version None)
Quarter: 2012Q3

REPORT INFORMATION
  Report Type: 
  Country: None (occurrence: None)
  Receive Date: 20120809
  Receipt Date: 20120807
  Transmission Date: 20120928
  Serious: Yes (Death, Hospitalization, Other)
  Sender: FDA-Public Use
  Company Number: KR-BAYER-2012-070696

PATIENT
  Age: 59 Year
  Sex: Female
  Weight: 48 kg

DRUGS (3)
  1. CISPLATIN [Suspect]
  2. NEXAVAR [Suspect]
     Indication: GASTRIC CANCER
     Dosage: 400 MG, BID
     Dates: start: 20120630, end: 20120714
  3. CAPECITABINE [Suspect]

REACTIONS (2)
  - LUNG INFECTION [None]
  - FANCONI SYNDROME [None]
